FAERS Safety Report 9652348 (Version 1)
Quarter: 2013Q4

REPORT INFORMATION
  Report Type: Spontaneous
  Country: US (occurrence: US)
  Receive Date: 20131029
  Receipt Date: 20131029
  Transmission Date: 20140711
  Serious: Yes (Hospitalization)
  Sender: FDA-Public Use
  Company Number: US-BIOGENIDEC-2013BI075866

PATIENT
  Age: 65 Year
  Sex: Male

DRUGS (18)
  1. TECFIDERA [Suspect]
     Indication: MULTIPLE SCLEROSIS
     Route: 048
     Dates: start: 20130430, end: 201305
  2. SUPPREP BOWEL PREP SOL [Concomitant]
     Dates: start: 20130507
  3. EXCEDRIN [Concomitant]
     Route: 048
  4. SIMVASTATIN [Concomitant]
     Route: 048
  5. LISINOPRIL [Concomitant]
     Route: 048
  6. CRANBERRY [Concomitant]
     Route: 048
  7. CHROMIUM [Concomitant]
     Route: 048
  8. AMPYRA [Concomitant]
     Route: 048
  9. ALPRAZOLAM [Concomitant]
     Route: 048
  10. CELEBREX [Concomitant]
     Route: 048
  11. LATANOPROST [Concomitant]
     Route: 031
  12. GARLIC [Concomitant]
     Route: 048
  13. MULTI CAP FOR HIM [Concomitant]
     Route: 048
  14. DOXEPIN HCL [Concomitant]
     Route: 048
  15. VITAMIN B [Concomitant]
     Route: 048
  16. MAGNESIUM [Concomitant]
     Route: 048
  17. VITAMIN D [Concomitant]
     Route: 048
  18. NEXIUM [Concomitant]
     Route: 048

REACTIONS (1)
  - Dyspepsia [Recovered/Resolved]
